FAERS Safety Report 23697845 (Version 2)
Quarter: 2024Q2

REPORT INFORMATION
  Report Type: Spontaneous
  Country: US (occurrence: US)
  Receive Date: 20240402
  Receipt Date: 20240620
  Transmission Date: 20240715
  Serious: No
  Sender: FDA-Public Use
  Company Number: US-MMM-XV49FS0L

PATIENT
  Sex: Male

DRUGS (2)
  1. KEYTRUDA [Suspect]
     Active Substance: PEMBROLIZUMAB
     Indication: Neoplasm malignant
     Dosage: UNK
  2. INLYTA [Suspect]
     Active Substance: AXITINIB
     Indication: Neoplasm malignant
     Dosage: STRENGTH 5MG, TWICE DAILY
     Route: 048
     Dates: start: 20240125

REACTIONS (2)
  - Weight decreased [Recovered/Resolved]
  - Rash [Not Recovered/Not Resolved]
